FAERS Safety Report 4472721-6 (Version None)
Quarter: 2004Q4

REPORT INFORMATION
  Report Type: 
  Country: None (occurrence: None)
  Receive Date: 20041012
  Receipt Date: 20041012
  Transmission Date: 20050328
  Serious: Yes (Other)
  Sender: FDA-Public Use
  Company Number: None

PATIENT
  Sex: Male
  Weight: 86.1834 kg

DRUGS (1)
  1. LEVAQUIN [Suspect]
     Indication: SINUSITIS
     Dosage: ONE  TABLET  ORAL
     Route: 048
     Dates: start: 20040923, end: 20041006

REACTIONS (2)
  - NECK PAIN [None]
  - PAIN IN EXTREMITY [None]
